FAERS Safety Report 6377442-0 (Version None)
Quarter: 2009Q3

REPORT INFORMATION
  Report Type: 
  Country: None (occurrence: None)
  Receive Date: 20090925
  Receipt Date: 20090915
  Transmission Date: 20100115
  Serious: Yes (Other)
  Sender: FDA-Public Use
  Company Number: FR-ELI_LILLY_AND_COMPANY-FR200909001805

PATIENT
  Age: 76 Year
  Sex: Female

DRUGS (3)
  1. OPTRUMA [Suspect]
     Indication: OSTEOPOROSIS
     Dosage: UNK, UNKNOWN
     Route: 048
     Dates: start: 20040101, end: 20060101
  2. RALOXIFENE HYDROCHLORIDE [Suspect]
     Indication: OSTEOPOROSIS
     Dosage: UNK, UNK
     Route: 048
     Dates: start: 20060101
  3. RALOXIFENE HYDROCHLORIDE [Suspect]
     Dosage: UNK, UNKNOWN
     Route: 048
     Dates: start: 20090101

REACTIONS (1)
  - BREAST CANCER [None]
